FAERS Safety Report 4907082-9 (Version None)
Quarter: 2006Q1

REPORT INFORMATION
  Report Type: 
  Country: None (occurrence: None)
  Receive Date: 20060207
  Receipt Date: 20060119
  Transmission Date: 20060701
  Serious: Yes (Other)
  Sender: FDA-Public Use
  Company Number: USA041082077

PATIENT
  Age: 79 Year
  Sex: Female

DRUGS (9)
  1. EVISTA [Suspect]
     Indication: OSTEOPOROSIS
     Dates: start: 20020101
  2. FORTEO [Suspect]
  3. PREMARIN [Concomitant]
  4. LORAZEPAM [Concomitant]
  5. CELEBREX [Concomitant]
  6. VITAMIN D [Concomitant]
  7. CALTRATE (CALCIUM CARBONATE) [Concomitant]
  8. SYNTHROID [Concomitant]
  9. FORTEO PEN (FORTEO PEN) PEN, DISPOSABLE [Concomitant]

REACTIONS (16)
  - ABDOMINAL PAIN UPPER [None]
  - BONE DENSITY DECREASED [None]
  - DERMATITIS ALLERGIC [None]
  - DEVICE FAILURE [None]
  - DISCOMFORT [None]
  - ERYTHEMA [None]
  - FEELING ABNORMAL [None]
  - FLATULENCE [None]
  - INJECTION SITE ERYTHEMA [None]
  - INJECTION SITE URTICARIA [None]
  - INTRACARDIAC THROMBUS [None]
  - MYOCARDIAL INFARCTION [None]
  - PHARMACEUTICAL PRODUCT COMPLAINT [None]
  - SARCOMA [None]
  - SKIN CANCER [None]
  - URTICARIA [None]
